FAERS Safety Report 25493803 (Version 1)
Quarter: 2025Q2

REPORT INFORMATION
  Report Type: Spontaneous
  Country: US (occurrence: None)
  Receive Date: 20250627
  Receipt Date: 20250627
  Transmission Date: 20250717
  Serious: Yes (Other)
  Sender: FDA-CTU
  Company Number: None

PATIENT
  Age: 37 Year
  Sex: Female
  Weight: 72 kg

DRUGS (1)
  1. VUEWAY [Suspect]
     Active Substance: GADOPICLENOL
     Route: 042

REACTIONS (6)
  - Contrast media reaction [None]
  - Sneezing [None]
  - Throat irritation [None]
  - Urticaria [None]
  - Flushing [None]
  - Feeling hot [None]

NARRATIVE: CASE EVENT DATE: 20250627
